FAERS Safety Report 6898526-4 (Version None)
Quarter: 2010Q3

REPORT INFORMATION
  Report Type: 
  Country: None (occurrence: None)
  Receive Date: 20100802
  Receipt Date: 20071211
  Transmission Date: 20110219
  Serious: No
  Sender: FDA-Public Use
  Company Number: US-PFIZER INC-2007061560

PATIENT
  Age: 68 Year
  Sex: Female
  Weight: 48.5 kg

DRUGS (8)
  1. LYRICA [Suspect]
     Indication: PAIN IN EXTREMITY
     Route: 048
     Dates: start: 20070301, end: 20071001
  2. NICOTINE POLACRILEX [Interacting]
     Indication: NICOTINE DEPENDENCE
     Dates: start: 20040101
  3. VITAMIN TAB [Concomitant]
     Route: 048
  4. DICLOFENAC [Concomitant]
  5. ZETIA [Concomitant]
  6. SPIRIVA [Concomitant]
     Route: 055
  7. IBANDRONATE SODIUM [Concomitant]
     Dates: start: 20070701
  8. ACTONEL [Concomitant]
     Dates: start: 20050101, end: 20070701

REACTIONS (4)
  - ABDOMINAL DISTENSION [None]
  - DRUG INTERACTION [None]
  - DRY MOUTH [None]
  - WAIST CIRCUMFERENCE INCREASED [None]
